FAERS Safety Report 25688386 (Version 1)
Quarter: 2025Q3

REPORT INFORMATION
  Report Type: Spontaneous
  Country: TW (occurrence: TW)
  Receive Date: 20250818
  Receipt Date: 20250818
  Transmission Date: 20251020
  Serious: Yes (Death, Hospitalization)
  Sender: AMGEN
  Company Number: TW-PFIZER INC-PV202500098886

PATIENT
  Sex: Male

DRUGS (1)
  1. ENBREL [Suspect]
     Active Substance: ETANERCEPT
     Indication: Rheumatoid arthritis
     Dosage: 25 MG, 2X/WEEK
     Route: 058
     Dates: start: 20051216

REACTIONS (5)
  - Hepatic encephalopathy [Fatal]
  - Hepatic cirrhosis [Fatal]
  - Ascites [Fatal]
  - Urinary tract infection [Unknown]
  - Altered state of consciousness [Unknown]

NARRATIVE: CASE EVENT DATE: 20250627
